FAERS Safety Report 12983432 (Version 1)
Quarter: 2016Q4

REPORT INFORMATION
  Report Type: Spontaneous
  Country: US (occurrence: US)
  Receive Date: 20161129
  Receipt Date: 20161129
  Transmission Date: 20170207
  Serious: Yes (Other)
  Sender: FDA-Public Use
  Company Number: US-CLINIGEN GROUP PLC/ CLINIGEN HEALTHCARE LTD-E2B_00005145

PATIENT
  Age: 32 Year
  Sex: Male

DRUGS (9)
  1. DIFLUCAN [Concomitant]
     Active Substance: FLUCONAZOLE
     Indication: PROPHYLAXIS
     Dosage: DOSE: 100 MG TOTAL DAILY DOSE: 100 MG
     Route: 048
  2. DITROPAN [Concomitant]
     Active Substance: OXYBUTYNIN CHLORIDE
     Indication: BLADDER IRRITATION
     Dosage: DOSE: 7.5 MG TOTAL DAILY DOSE: 22.5 MG
     Route: 048
  3. NEUPOGEN [Concomitant]
     Active Substance: FILGRASTIM
     Indication: LEUKOPENIA
     Dosage: DOSE: 600 MCG TOTAL DAILY DOSE: 600 MCG
     Route: 058
  4. CYTOXAN [Concomitant]
     Active Substance: CYCLOPHOSPHAMIDE
     Indication: LYMPHOMA
     Route: 042
  5. EPOGEN [Concomitant]
     Active Substance: ERYTHROPOIETIN
     Indication: ANAEMIA
     Dosage: DOSE: 10000 IU
     Route: 058
  6. FOSCAVIR [Suspect]
     Active Substance: FOSCARNET SODIUM
     Indication: CYTOMEGALOVIRUS CHORIORETINITIS
     Dosage: DOSE: 90 MG/KG TOTAL DAILY DOSE: 180 MG/KG
     Route: 042
     Dates: start: 19960122, end: 19960215
  7. IRON [Concomitant]
     Active Substance: IRON
     Indication: ANAEMIA
     Dosage: DOSE: 325 MG TOTAL DAILY DOSE: 975 MG
     Route: 048
  8. MYCELEX TROCHES [Concomitant]
     Indication: PROPHYLAXIS
     Route: 048
  9. PENTAMIDINE [Concomitant]
     Active Substance: PENTAMIDINE
     Indication: PROPHYLAXIS
     Dosage: DOSE: 300 MG TOTAL DAILY DOSE: 300 MG
     Route: 055

REACTIONS (3)
  - Cystitis haemorrhagic [Not Recovered/Not Resolved]
  - Urethral pain [Not Recovered/Not Resolved]
  - Haematuria [Not Recovered/Not Resolved]
